FAERS Safety Report 13107980 (Version 1)
Quarter: 2017Q1

REPORT INFORMATION
  Report Type: Report from Study
  Country: US (occurrence: US)
  Receive Date: 20170112
  Receipt Date: 20170112
  Transmission Date: 20170428
  Serious: Yes (Death)
  Sender: FDA-Public Use
  Company Number: US-ROCHE-1877860

PATIENT
  Sex: Male

DRUGS (20)
  1. HUMALOG [Concomitant]
     Active Substance: INSULIN LISPRO
     Dosage: 100 UNIT /ML
     Route: 065
  2. OMEPRAZOLE. [Concomitant]
     Active Substance: OMEPRAZOLE
     Route: 065
  3. LIDOCAINE. [Concomitant]
     Active Substance: LIDOCAINE
     Dosage: 1 PATCH
     Route: 065
  4. DULERA [Concomitant]
     Active Substance: FORMOTEROL FUMARATE DIHYDRATE\MOMETASONE FUROATE
     Dosage: 200- 5MCG 2 PUFFS TWICE A DAY
     Route: 065
  5. ROPINIROLE. [Concomitant]
     Active Substance: ROPINIROLE
     Dosage: 1/2TABLET AT BED TIME
     Route: 065
  6. XOLAIR [Suspect]
     Active Substance: OMALIZUMAB
     Route: 058
  7. FUROSEMIDE. [Concomitant]
     Active Substance: FUROSEMIDE
     Dosage: 1 TABLET EVERY MORNING
     Route: 065
  8. TAMSULOSIN [Concomitant]
     Active Substance: TAMSULOSIN
     Route: 065
  9. TRAZODONE [Concomitant]
     Active Substance: TRAZODONE HYDROCHLORIDE
     Dosage: 1 TAB AT EVERY NIGHT BEFORE BED
     Route: 065
  10. XOLAIR [Suspect]
     Active Substance: OMALIZUMAB
     Route: 058
  11. XOLAIR [Suspect]
     Active Substance: OMALIZUMAB
     Route: 058
  12. GABAPENTIN. [Concomitant]
     Active Substance: GABAPENTIN
     Route: 065
  13. OPANA [Concomitant]
     Active Substance: OXYMORPHONE HYDROCHLORIDE
     Route: 065
  14. ALPRAZOLAM. [Concomitant]
     Active Substance: ALPRAZOLAM
     Route: 065
  15. IPRATROPIUM + SALBUTAMOL [Concomitant]
     Dosage: 0.5-2.5 EVERY 6HOURS AS NEEDED
     Route: 065
  16. EPIPEN [Concomitant]
     Active Substance: EPINEPHRINE
     Dosage: 0.3 MG/0.3ML AS NEEDED
     Route: 065
  17. TORSEMIDE. [Concomitant]
     Active Substance: TORSEMIDE
     Dosage: 2 TABLET EVERY MORNING
     Route: 065
  18. LEVEMIR [Concomitant]
     Active Substance: INSULIN DETEMIR
     Dosage: 100UNIT /ML S
     Route: 065
  19. OXYMORPHONE [Concomitant]
     Active Substance: OXYMORPHONE
     Route: 065
  20. XOLAIR [Suspect]
     Active Substance: OMALIZUMAB
     Indication: ASTHMA
     Route: 058
     Dates: start: 201612, end: 201612

REACTIONS (8)
  - Malaise [Unknown]
  - Respiratory failure [Fatal]
  - Musculoskeletal chest pain [Unknown]
  - Oedema peripheral [Unknown]
  - Abdominal pain upper [Unknown]
  - Abdominal distension [Unknown]
  - Weight increased [Unknown]
  - Chest pain [Unknown]
